FAERS Safety Report 6619085-7 (Version None)
Quarter: 2010Q1

REPORT INFORMATION
  Report Type: 
  Country: None (occurrence: None)
  Receive Date: 20100308
  Receipt Date: 20100224
  Transmission Date: 20100710
  Serious: No
  Sender: FDA-Public Use
  Company Number: US-B.I. PHARMACEUTICALS,INC./RIDGEFIELD-2010-BP-02285BP

PATIENT
  Sex: Female

DRUGS (1)
  1. MICARDIS [Suspect]

REACTIONS (3)
  - NAUSEA [None]
  - TREMOR [None]
  - URINARY INCONTINENCE [None]
